FAERS Safety Report 6928362-1 (Version None)
Quarter: 2010Q3

REPORT INFORMATION
  Report Type: 
  Country: None (occurrence: None)
  Receive Date: 20100817
  Receipt Date: 20100806
  Transmission Date: 20110219
  Serious: Yes (Hospitalization, Other)
  Sender: FDA-Public Use
  Company Number: US-MERCK-0802USA05963

PATIENT
  Age: 60 Year
  Sex: Female
  Weight: 59 kg

DRUGS (3)
  1. FOSAMAX [Suspect]
     Indication: OSTEOPOROSIS
     Route: 048
     Dates: start: 19970801, end: 20071101
  2. FOSAMAX [Suspect]
     Route: 048
     Dates: start: 19950101, end: 20070924
  3. SYNTHROID [Concomitant]
     Route: 065
     Dates: start: 19900101

REACTIONS (31)
  - ADVERSE DRUG REACTION [None]
  - ADVERSE EVENT [None]
  - ANGINA PECTORIS [None]
  - BASAL CELL CARCINOMA [None]
  - CHEST DISCOMFORT [None]
  - CHEST PAIN [None]
  - CORONARY ARTERY DISEASE [None]
  - DEPRESSION [None]
  - FALL [None]
  - FRACTURE [None]
  - GASTROOESOPHAGEAL REFLUX DISEASE [None]
  - GRANULOMA [None]
  - HOT FLUSH [None]
  - HYPERLIPIDAEMIA [None]
  - HYPERTENSION [None]
  - MALIGNANT MELANOMA [None]
  - MUSCULOSKELETAL PAIN [None]
  - MYALGIA [None]
  - ORAL TORUS [None]
  - OSTEONECROSIS OF JAW [None]
  - PARAESTHESIA [None]
  - PELVIC FRACTURE [None]
  - RESPIRATORY TRACT INFECTION [None]
  - ROAD TRAFFIC ACCIDENT [None]
  - SEBORRHOEIC KERATOSIS [None]
  - SKIN CANCER [None]
  - SKIN DISORDER [None]
  - TENOSYNOVITIS [None]
  - TRAUMATIC FRACTURE [None]
  - TUBERCULIN TEST POSITIVE [None]
  - UPPER LIMB FRACTURE [None]
